FAERS Safety Report 25615759 (Version 1)
Quarter: 2025Q3

REPORT INFORMATION
  Report Type: Spontaneous
  Country: US (occurrence: US)
  Receive Date: 20250729
  Receipt Date: 20250729
  Transmission Date: 20251020
  Serious: Yes (Hospitalization, Other)
  Sender: GLAXOSMITHKLINE
  Company Number: US-GSK-US2025GSK096717

PATIENT
  Age: 17 Year
  Sex: Male

DRUGS (7)
  1. LAMOTRIGINE [Interacting]
     Active Substance: LAMOTRIGINE
     Indication: Seizure
  2. LEVETIRACETAM [Interacting]
     Active Substance: LEVETIRACETAM
     Indication: Seizure
  3. CANNABIS SATIVA SUBSP. INDICA TOP [Interacting]
     Active Substance: CANNABIS SATIVA SUBSP. INDICA TOP
     Indication: Product used for unknown indication
  4. OXCARBAZEPINE [Interacting]
     Active Substance: OXCARBAZEPINE
     Indication: Seizure
  5. LORAZEPAM [Interacting]
     Active Substance: LORAZEPAM
     Indication: Seizure
  6. ZONISAMIDE [Interacting]
     Active Substance: ZONISAMIDE
     Indication: Seizure
  7. CLOBAZAM [Interacting]
     Active Substance: CLOBAZAM
     Indication: Seizure

REACTIONS (4)
  - Drug interaction [Recovering/Resolving]
  - Partial seizures with secondary generalisation [Recovering/Resolving]
  - Focal dyscognitive seizures [Recovering/Resolving]
  - Condition aggravated [Recovering/Resolving]
